FAERS Safety Report 9744523 (Version 2)
Quarter: 2020Q4

REPORT INFORMATION
  Report Type: Spontaneous
  Country: FR (occurrence: FR)
  Receive Date: 20131210
  Receipt Date: 20201110
  Transmission Date: 20210114
  Serious: Yes (Hospitalization, Disabling)
  Sender: FDA-Public Use
  Company Number: FR-BAXTER-2013BAX047948

PATIENT
  Age: 33 Year
  Sex: Female

DRUGS (14)
  1. NOVOSEVEN [Suspect]
     Active Substance: COAGULATION FACTOR VIIA RECOMBINANT HUMAN
     Indication: UTERINE OPERATION
     Dosage: 5 MG, QD
     Route: 042
     Dates: start: 20131002, end: 20131002
  2. BETAMETHASONE. [Concomitant]
     Active Substance: BETAMETHASONE
     Indication: PRODUCT USED FOR UNKNOWN INDICATION
     Route: 065
  3. ADALATE [Concomitant]
     Active Substance: NIFEDIPINE
     Indication: BLOOD PRESSURE ABNORMAL
     Route: 065
  4. AMLOR [Concomitant]
     Active Substance: AMLODIPINE BESYLATE
     Indication: BLOOD PRESSURE INADEQUATELY CONTROLLED
     Route: 065
  5. NALADOR [Suspect]
     Active Substance: SULPROSTONE
     Indication: PREMEDICATION
     Dosage: 2 AMPULS
     Route: 042
     Dates: start: 20131002, end: 20131002
  6. VOLUVEN [Suspect]
     Active Substance: HYDROXYETHYL STARCH 130/0.4
     Indication: PRODUCT USED FOR UNKNOWN INDICATION
     Dosage: 1.5 L, QD
     Route: 042
     Dates: start: 20131002, end: 20131002
  7. RINGER LACTATE VIAFLO, SOLUTION POUR PERFUSION [Suspect]
     Active Substance: CALCIUM CHLORIDE\POTASSIUM CHLORIDE\SODIUM CHLORIDE\SODIUM LACTATE
     Indication: HAEMORRHAGE
     Route: 042
     Dates: start: 20131002, end: 20131002
  8. EXACYL [Suspect]
     Active Substance: TRANEXAMIC ACID
     Indication: PRODUCT USED FOR UNKNOWN INDICATION
     Dosage: 2.50 G, QD (0.5G/5 ML)
     Route: 042
     Dates: start: 20131002, end: 20131002
  9. CLOTTAFACT [Suspect]
     Active Substance: FIBRINOGEN HUMAN
     Indication: PRODUCT USED FOR UNKNOWN INDICATION
     Dosage: 3 VIALS, 4.50 G, QD (1.5 G/100 ML, 3 FLACONS)
     Route: 042
     Dates: start: 20131002, end: 20131002
  10. CEFAZOLINE [Concomitant]
     Active Substance: CEFAZOLIN SODIUM
     Indication: PRODUCT USED FOR UNKNOWN INDICATION
     Route: 065
     Dates: start: 20131002
  11. NEOSYNEPHRINE [Concomitant]
     Active Substance: PHENYLEPHRINE HYDROCHLORIDE
     Indication: PRODUCT USED FOR UNKNOWN INDICATION
     Route: 065
     Dates: start: 20131002
  12. AUGMENTIN [Concomitant]
     Active Substance: AMOXICILLIN\CLAVULANATE POTASSIUM
     Indication: PRODUCT USED FOR UNKNOWN INDICATION
     Route: 065
     Dates: start: 20131002
  13. ADALATE [Concomitant]
     Active Substance: NIFEDIPINE
     Dates: start: 20131001
  14. OXYTOCIN. [Concomitant]
     Active Substance: OXYTOCIN
     Indication: LABOUR INDUCTION
     Dosage: 6 DOSES
     Route: 065
     Dates: start: 20131002

REACTIONS (5)
  - Hepatocellular injury [Unknown]
  - Renal cortical necrosis [Not Recovered/Not Resolved]
  - Acute kidney injury [Recovered/Resolved with Sequelae]
  - Thrombocytopenia [Recovered/Resolved]
  - Hypertension [Recovered/Resolved]

NARRATIVE: CASE EVENT DATE: 20131002
